FAERS Safety Report 7905947-7 (Version None)
Quarter: 2011Q4

REPORT INFORMATION
  Report Type: 
  Country: None (occurrence: None)
  Receive Date: 20111108
  Receipt Date: 20111024
  Transmission Date: 20120403
  Serious: Yes (Hospitalization, Other)
  Sender: FDA-Public Use
  Company Number: GGEL20111101413

PATIENT
  Age: 76 Year
  Sex: Female

DRUGS (4)
  1. ZOLPIDEM [Concomitant]
  2. GABAPENTIN [Suspect]
     Indication: DIABETIC NEUROPATHY
     Dosage: 3600 MILLIGRAM, 1 IN 8 HR
  3. GLYBURIDE [Concomitant]
  4. OXYCODONE/ACETAMINOPHEN [Concomitant]

REACTIONS (1)
  - AKATHISIA [None]
